FAERS Safety Report 23611672 (Version 1)
Quarter: 2024Q1

REPORT INFORMATION
  Report Type: Report from Study
  Country: SA (occurrence: SA)
  Receive Date: 20240308
  Receipt Date: 20240308
  Transmission Date: 20240410
  Serious: Yes (Hospitalization, Other)
  Sender: FDA-Public Use
  Company Number: SA-SANDOZ-SDZ2024SA023266

PATIENT
  Sex: Female

DRUGS (1)
  1. HYRIMOZ [Suspect]
     Active Substance: ADALIMUMAB-ADAZ
     Indication: Rheumatic disorder
     Dosage: 40 MG, EVERY 14 DAYS
     Route: 058
     Dates: start: 20231101

REACTIONS (8)
  - Mobility decreased [Recovered/Resolved]
  - Bone pain [Recovered/Resolved]
  - Oedema [Recovered/Resolved]
  - Inflammation [Recovered/Resolved]
  - Arthralgia [Recovered/Resolved]
  - Myalgia [Recovered/Resolved]
  - Condition aggravated [Recovered/Resolved]
  - Off label use [Unknown]
